FAERS Safety Report 8506602-5 (Version None)
Quarter: 2012Q3

REPORT INFORMATION
  Report Type: 
  Country: None (occurrence: None)
  Receive Date: 20120702
  Receipt Date: 20120619
  Transmission Date: 20120928
  Serious: Yes (Other)
  Sender: FDA-Public Use
  Company Number: DSA_58155_2012

PATIENT

DRUGS (3)
  1. GEMCITABINE [Suspect]
     Indication: COLORECTAL CANCER
     Dosage: (900MG/M2; WEEKLY INTRAVENOUS (NOT OTHERWISE SPECIFIED))
     Route: 042
  2. LEUCOVORIN CALCIUM [Suspect]
     Indication: COLORECTAL CANCER
     Dosage: (100MG/M2; WEEKLY INTRAVENOUS (NOT OTHERWISE SPECIFIED))
     Route: 042
  3. FLUOROURACIL [Suspect]
     Indication: COLORECTAL CANCER
     Dosage: (450MG/M2; WEEKLY INTRAVENOUS BOLUS)
     Route: 040

REACTIONS (1)
  - SUBDURAL HAEMATOMA [None]
